FAERS Safety Report 14020552 (Version 2)
Quarter: 2017Q4

REPORT INFORMATION
  Report Type: Spontaneous
  Country: US (occurrence: US)
  Receive Date: 20170928
  Receipt Date: 20171024
  Transmission Date: 20180321
  Serious: Yes (Other)
  Sender: FDA-Public Use
  Company Number: US-AKORN PHARMACEUTICALS-2017AKN01147

PATIENT
  Sex: Female
  Weight: 58.96 kg

DRUGS (7)
  1. MAGNESIUM [Concomitant]
     Active Substance: MAGNESIUM
  2. MYORISAN [Suspect]
     Active Substance: ISOTRETINOIN
     Indication: ACNE
     Dosage: 40 MG, 2X/DAY
     Route: 048
     Dates: start: 20170607, end: 20170830
  3. ZINC. [Concomitant]
     Active Substance: ZINC
  4. FIBER [Concomitant]
     Active Substance: PSYLLIUM HUSK
  5. PROBIOTIC [Concomitant]
     Active Substance: PROBIOTICS NOS
  6. FISH OIL [Concomitant]
     Active Substance: FISH OIL
  7. DIGESTIVE ENZYME [Concomitant]
     Active Substance: UNSPECIFIED INGREDIENT

REACTIONS (4)
  - Depression [Unknown]
  - Acne [Unknown]
  - Anxiety [Unknown]
  - Abnormal behaviour [Unknown]

NARRATIVE: CASE EVENT DATE: 2017
